FAERS Safety Report 5325761-9 (Version None)
Quarter: 2007Q2

REPORT INFORMATION
  Report Type: 
  Country: None (occurrence: None)
  Receive Date: 20070509
  Receipt Date: 20070423
  Transmission Date: 20071010
  Serious: Yes (Other)
  Sender: FDA-Public Use
  Company Number: 2007S1002964

PATIENT
  Age: 45 Year
  Sex: Female
  Weight: 47.1741 kg

DRUGS (6)
  1. DIAZEPAM [Suspect]
     Indication: ANXIETY
     Dosage: 5 MG; AS NEEDED; ORAL
     Route: 048
     Dates: start: 20070403, end: 20070401
  2. DIAZEPAM [Suspect]
     Indication: CONVULSION
     Dosage: 5 MG; AS NEEDED; ORAL
     Route: 048
     Dates: start: 20070403, end: 20070401
  3. ESTROGENS CONJUGATED [Concomitant]
  4. LEVOTHYROXINE SODIUM [Concomitant]
  5. MORPHINE SULFATE [Concomitant]
  6. OXCARBAZEPINE [Concomitant]

REACTIONS (7)
  - DRUG INEFFECTIVE [None]
  - DRUG LEVEL DECREASED [None]
  - EPILEPSY [None]
  - PHARMACEUTICAL PRODUCT COMPLAINT [None]
  - POOR QUALITY DRUG ADMINISTERED [None]
  - REFUSAL OF TREATMENT BY PATIENT [None]
  - TREATMENT NONCOMPLIANCE [None]
